FAERS Safety Report 10926532 (Version 1)
Quarter: 2015Q1

REPORT INFORMATION
  Report Type: Spontaneous
  Country: IN (occurrence: None)
  Receive Date: 20150316
  Receipt Date: 20150316
  Transmission Date: 20150721
  Serious: Yes (Other)
  Sender: FDA-Public Use
  Company Number: 2015JUB00058

PATIENT
  Age: 50 Year
  Sex: Male

DRUGS (3)
  1. TELMISARTAN (TELMISARTAN) [Concomitant]
     Active Substance: TELMISARTAN
  2. ACETYL SALICYLATE (ACETYL SALICYLATE) [Concomitant]
  3. ESCITALOPRAM [Suspect]
     Active Substance: ESCITALOPRAM OXALATE
     Indication: PANIC ATTACK

REACTIONS (4)
  - Hypochloraemia [None]
  - Inappropriate antidiuretic hormone secretion [None]
  - Hyponatraemic encephalopathy [None]
  - Hypokalaemia [None]
